FAERS Safety Report 10470325 (Version 3)
Quarter: 2014Q4

REPORT INFORMATION
  Report Type: Spontaneous
  Country: CH (occurrence: CH)
  Receive Date: 20140923
  Receipt Date: 20141117
  Transmission Date: 20150528
  Serious: Yes (Other)
  Sender: FDA-Public Use
  Company Number: CH-PFIZER INC-2013331032

PATIENT
  Sex: Female

DRUGS (1)
  1. VIBRAMYCIN [Suspect]
     Active Substance: DOXYCYCLINE
     Indication: ACNE
     Dosage: 50 MG, 1X/DAY
     Route: 064
     Dates: start: 20131003, end: 20131010

REACTIONS (3)
  - Single umbilical artery [Recovered/Resolved]
  - Foetal growth restriction [Recovered/Resolved]
  - Foetal exposure during pregnancy [Recovered/Resolved]

NARRATIVE: CASE EVENT DATE: 20131004
